FAERS Safety Report 7906391-9 (Version None)
Quarter: 2011Q4

REPORT INFORMATION
  Report Type: 
  Country: None (occurrence: None)
  Receive Date: 20111110
  Receipt Date: 20111108
  Transmission Date: 20120403
  Serious: Yes (Death)
  Sender: FDA-Public Use
  Company Number: US-PFIZER INC-2011273259

PATIENT
  Sex: Male

DRUGS (3)
  1. PAZOPANIB [Concomitant]
  2. EVEROLIMUS [Concomitant]
  3. SUTENT [Suspect]
     Indication: RENAL CANCER
     Dosage: 50 MG, 1X/DAY
     Route: 048
     Dates: start: 20111019

REACTIONS (1)
  - DEATH [None]
